FAERS Safety Report 8263085 (Version 4)
Quarter: 2012Q4

REPORT INFORMATION
  Report Type: Report from Study
  Country: DE (occurrence: DE)
  Receive Date: 20111125
  Receipt Date: 20121127
  Transmission Date: 20130627
  Serious: Yes (Other)
  Sender: FDA-Public Use
  Company Number: PHHO2011DE019111

PATIENT
  Age: 59 Year
  Sex: Male
  Weight: 72 kg

DRUGS (9)
  1. AFINITOR [Suspect]
     Indication: NEUROENDOCRINE TUMOUR
     Dosage: 10 mg, UNK
     Dates: start: 20110901, end: 20111113
  2. AFINITOR [Suspect]
     Dosage: No treatment
     Dates: start: 20111114, end: 20111207
  3. AFINITOR [Suspect]
     Dosage: 5 mg, QD
     Dates: start: 20111208
  4. L-THYROXINE [Concomitant]
     Indication: HYPOTHYROIDISM
     Dosage: 100 mg, UNK
     Route: 048
     Dates: start: 20111104
  5. SANDOSTATIN LAR [Concomitant]
     Indication: NEUROENDOCRINE TUMOUR
     Dosage: 30 mg, UNK
     Dates: start: 20070301
  6. VOLTAREN DISPERS [Concomitant]
     Indication: BACK PAIN
     Dosage: UNK
  7. CELEBREX [Concomitant]
     Indication: BACK PAIN
     Dosage: 200 mg, UNK
     Route: 048
     Dates: start: 20111027
  8. OMEPRAZOL [Concomitant]
     Indication: ABDOMINAL PAIN UPPER
     Dosage: 10 mg, UNK
     Route: 048
     Dates: start: 20110929
  9. NSAID^S [Concomitant]

REACTIONS (1)
  - Circulatory collapse [Recovered/Resolved]
